FAERS Safety Report 16019325 (Version 2)
Quarter: 2020Q4

REPORT INFORMATION
  Report Type: Spontaneous
  Country: JP (occurrence: JP)
  Receive Date: 20190228
  Receipt Date: 20201120
  Transmission Date: 20210113
  Serious: Yes (Death)
  Sender: FDA-Public Use
  Company Number: JP-MTPC-MTPC2018-0022664

PATIENT
  Age: 70 Year
  Sex: Male

DRUGS (2)
  1. RADICUT BAG FOR I.V. INFUSION 30MG [Suspect]
     Active Substance: EDARAVONE
     Indication: AMYOTROPHIC LATERAL SCLEROSIS
     Dosage: UNK
     Route: 041
  2. RILUZOLE. [Concomitant]
     Active Substance: RILUZOLE
     Route: 065

REACTIONS (3)
  - Dyspnoea [Fatal]
  - Gastrostomy [Fatal]
  - Pneumonia aspiration [Fatal]
